FAERS Safety Report 16359613 (Version 2)
Quarter: 2019Q3

REPORT INFORMATION
  Report Type: Report from Study
  Country: US (occurrence: US)
  Receive Date: 20190528
  Receipt Date: 20190708
  Transmission Date: 20191004
  Serious: Yes (Hospitalization)
  Sender: FDA-Public Use
  Company Number: US-SA-2019SA145262

PATIENT
  Age: 61 Year
  Sex: Male

DRUGS (2)
  1. DUPILUMAB [Suspect]
     Active Substance: DUPILUMAB
     Dosage: 300 MG, QOW
     Dates: start: 20190522
  2. DUPILUMAB [Suspect]
     Active Substance: DUPILUMAB
     Indication: ECZEMA
     Dosage: UNK UNK, 1X
     Dates: start: 20190508, end: 20190508

REACTIONS (4)
  - Chills [Unknown]
  - Product storage error [Unknown]
  - Skin infection [Unknown]
  - Pyrexia [Unknown]

NARRATIVE: CASE EVENT DATE: 201905
